FAERS Safety Report 8782907 (Version 4)
Quarter: 2012Q4

REPORT INFORMATION
  Report Type: 
  Country: US (occurrence: US)
  Receive Date: 20120913
  Receipt Date: 20121128
  Transmission Date: 20130627
  Serious: Yes (Hospitalization, Other)
  Sender: FDA-Public Use
  Company Number: US-009507513-1202USA00825

PATIENT

DRUGS (8)
  1. FOSAMAX [Suspect]
     Indication: OSTEOPOROSIS
     Dosage: 10 mg, qd
     Route: 048
     Dates: start: 1998
  2. FOSAMAX [Suspect]
     Dosage: 70 mg, qw
     Route: 048
     Dates: end: 2009
  3. CENTRUM SILVER [Concomitant]
     Dosage: UNK
     Dates: start: 1992
  4. CALCIUM (UNSPECIFIED) [Concomitant]
     Dosage: UNK
     Dates: start: 1992
  5. OMEGA-3 MARINE TRIGLYCERIDES [Concomitant]
     Dosage: UNK
     Dates: start: 1992
  6. SYNTHROID [Concomitant]
     Indication: THYROID DISORDER
     Dosage: UNK
     Dates: start: 1993, end: 2005
  7. FOSAMAX [Suspect]
     Dosage: 70 mg, UNK
     Route: 048
  8. ALENDRONATE SODIUM [Suspect]
     Dosage: 70 mg, UNK

REACTIONS (11)
  - Femur fracture [Unknown]
  - Femur fracture [Recovered/Resolved]
  - Fall [Unknown]
  - Intramedullary rod insertion [Recovered/Resolved]
  - Intramedullary rod insertion [Unknown]
  - Breast cancer [Recovered/Resolved]
  - Tooth extraction [Unknown]
  - Pain in extremity [Unknown]
  - Malignant tumour excision [Recovered/Resolved]
  - Radiotherapy to breast [Unknown]
  - Cataract operation [Unknown]
